FAERS Safety Report 20602189 (Version 1)
Quarter: 2022Q1

REPORT INFORMATION
  Report Type: Spontaneous
  Country: US (occurrence: None)
  Receive Date: 20220316
  Receipt Date: 20220316
  Transmission Date: 20220423
  Serious: No
  Sender: FDA-Public Use
  Company Number: 2022A086163

PATIENT
  Age: 640 Month
  Sex: Female

DRUGS (2)
  1. SYMLIN [Suspect]
     Active Substance: PRAMLINTIDE ACETATE
     Dosage: 15.0UG UNKNOWN
     Route: 058
     Dates: start: 202202
  2. SYMLIN [Suspect]
     Active Substance: PRAMLINTIDE ACETATE
     Dosage: 30.0UG UNKNOWN
     Route: 058

REACTIONS (2)
  - Injection site pain [Unknown]
  - Injection site bruising [Unknown]

NARRATIVE: CASE EVENT DATE: 20220201
